FAERS Safety Report 8746785 (Version 2)
Quarter: 2013Q2

REPORT INFORMATION
  Report Type: Spontaneous
  Country: US (occurrence: US)
  Receive Date: 20120827
  Receipt Date: 20130408
  Transmission Date: 20140414
  Serious: Yes (Other)
  Sender: FDA-Public Use
  Company Number: US-ASTRAZENECA-2012SE57957

PATIENT
  Age: 32 Year
  Sex: Female

DRUGS (29)
  1. ZOMIG [Suspect]
     Route: 048
  2. LISINOPRIL [Suspect]
     Route: 048
  3. ELAVIL [Suspect]
     Route: 065
  4. RELPAX [Suspect]
     Route: 065
  5. IMITREX [Suspect]
     Route: 065
  6. METFORMIN [Concomitant]
  7. NOVOLOG [Concomitant]
     Dosage: 70/30 15 UG, A5 MINUTES BEFORE BREAKFAST
  8. ASA [Concomitant]
  9. HCTZ [Concomitant]
  10. LIPITOR [Concomitant]
  11. PROTONIX [Concomitant]
  12. LYRICA [Concomitant]
  13. LYRICA [Concomitant]
  14. CALAN [Concomitant]
  15. VITAMIN D [Concomitant]
  16. MAGNESIUM [Concomitant]
     Dosage: 4 TABLETS PER DAY, 2 IN AM AND 2 IN PM
  17. REMERON [Concomitant]
  18. NAFTIN [Concomitant]
     Dosage: 1 % CREAM TO BOTH FEET BID
  19. OXYCODONE [Concomitant]
     Indication: PAIN
  20. ZENAFLEX [Concomitant]
  21. ALBUTEROL [Concomitant]
     Indication: WHEEZING
     Dosage: 90 MCG, 2 PUFFS
  22. VISTARIL [Concomitant]
     Indication: ANXIETY
  23. LACTULOSE [Concomitant]
  24. AMBIEN [Concomitant]
     Indication: SLEEP DISORDER
  25. FIROCET [Concomitant]
     Dosage: 1-2 AT ONSET, AY REPEAT IN 4-6 HOURS, NOT TO EXCEED 4/DAY, 8 PER WEEK
  26. COMPAZINE [Concomitant]
  27. ANALPRAM [Concomitant]
     Dosage: 2.5 % TO 1 % USEE AS DIRECTED
  28. LIDOCAINE [Concomitant]
     Dosage: APPLY TO AFFECTED BACK AD HIP AREAS Q 12 HRS
  29. PRILOCAINE [Concomitant]
     Dosage: APPLY TO AFFECTED BACK AD HIP AREAS Q 12 HRS

REACTIONS (18)
  - Supraventricular tachycardia [Unknown]
  - Asthma [Unknown]
  - Ataxia [Unknown]
  - Type 2 diabetes mellitus [Unknown]
  - Oesophageal spasm [Unknown]
  - Fibromyalgia [Unknown]
  - Hypertension [Unknown]
  - Sleep apnoea syndrome [Unknown]
  - Pulmonary hypertension [Unknown]
  - Back pain [Unknown]
  - Migraine [Unknown]
  - Temporomandibular joint syndrome [Unknown]
  - Dysstasia [Unknown]
  - Gait disturbance [Unknown]
  - Weight increased [Unknown]
  - Anaemia [Unknown]
  - Nausea [Unknown]
  - Vomiting [Unknown]
